FAERS Safety Report 21003303 (Version 1)
Quarter: 2022Q2

REPORT INFORMATION
  Report Type: Spontaneous
  Country: US (occurrence: US)
  Receive Date: 20220624
  Receipt Date: 20220624
  Transmission Date: 20220720
  Serious: Yes (Hospitalization, Other)
  Sender: FDA-Public Use
  Company Number: US-Inventia-000559

PATIENT
  Age: 75 Year
  Sex: Male

DRUGS (6)
  1. DULOXETINE [Interacting]
     Active Substance: DULOXETINE
     Indication: Product used for unknown indication
     Dosage: NONCOMPLIANT-TAKE DULOXETINE 30 MG ONCE TO 3 TIMES A WEEK.
  2. METOPROLOL [Interacting]
     Active Substance: METOPROLOL
     Indication: Product used for unknown indication
     Dosage: METOPROLOL CONSISTENTLY FOR MORE THAN 5 YEARS.
  3. LISINOPRIL [Concomitant]
     Active Substance: LISINOPRIL
  4. FUROSEMIDE [Concomitant]
     Active Substance: FUROSEMIDE
  5. ALLOPURINOL [Concomitant]
     Active Substance: ALLOPURINOL
  6. SIMVASTATIN [Concomitant]
     Active Substance: SIMVASTATIN

REACTIONS (4)
  - Drug interaction [Unknown]
  - Hypertensive emergency [Unknown]
  - Cerebrovascular accident [Unknown]
  - Treatment noncompliance [Unknown]
